FAERS Safety Report 8546902-6 (Version None)
Quarter: 2012Q3

REPORT INFORMATION
  Report Type: 
  Country: None (occurrence: None)
  Receive Date: 20120727
  Receipt Date: 20120321
  Transmission Date: 20120928
  Serious: No
  Sender: FDA-Public Use
  Company Number: US-ASTRAZENECA-2012SE03633

PATIENT
  Age: 44 Year
  Sex: Female

DRUGS (6)
  1. SEROQUEL [Suspect]
     Route: 048
  2. HYDROCORTISONE [Concomitant]
  3. SPIRONOLACTONE [Concomitant]
  4. SEROQUEL [Suspect]
     Route: 048
  5. SEROQUEL [Suspect]
     Indication: SCHIZOAFFECTIVE DISORDER BIPOLAR TYPE
     Route: 048
  6. SEROQUEL [Suspect]
     Route: 048

REACTIONS (6)
  - FATIGUE [None]
  - MENTAL DISORDER [None]
  - HYPERSOMNIA [None]
  - WEIGHT INCREASED [None]
  - SWELLING FACE [None]
  - FLUID RETENTION [None]
